FAERS Safety Report 8595019-3 (Version None)
Quarter: 2012Q3

REPORT INFORMATION
  Report Type: 
  Country: None (occurrence: None)
  Receive Date: 20120815
  Receipt Date: 20120806
  Transmission Date: 20120928
  Serious: Yes (Other)
  Sender: FDA-Public Use
  Company Number: US-SANOFI-AVENTIS-2012SA057167

PATIENT
  Sex: Female

DRUGS (5)
  1. ACTONEL [Concomitant]
  2. SOTALOL HCL [Suspect]
     Dosage: SOTALOL 80 MG IN THE MORNING AS WELL AS 40 MG OF SOTALOL IN THE EVENING
     Route: 048
  3. SPIRONOLACTONE [Suspect]
     Route: 048
  4. MULTAQ [Suspect]
     Indication: ATRIAL FIBRILLATION
     Dosage: 10AM AND 10PM.
     Route: 048
  5. ASPIRIN [Concomitant]
     Indication: ANTIPLATELET THERAPY

REACTIONS (12)
  - EXTRASYSTOLES [None]
  - VOMITING [None]
  - DYSPNOEA [None]
  - HEART RATE INCREASED [None]
  - FEELING HOT [None]
  - PALPITATIONS [None]
  - TREMOR [None]
  - ASTHENIA [None]
  - DYSGEUSIA [None]
  - FATIGUE [None]
  - SUICIDAL IDEATION [None]
  - HYPERHIDROSIS [None]
